FAERS Safety Report 18860448 (Version 17)
Quarter: 2024Q3

REPORT INFORMATION
  Report Type: Report from Study
  Country: US (occurrence: US)
  Receive Date: 20210208
  Receipt Date: 20240706
  Transmission Date: 20241017
  Serious: Yes (Other)
  Sender: TAKEDA
  Company Number: US-TAKEDA-US202022121

PATIENT
  Sex: Female

DRUGS (3)
  1. HUMAN IMMUNOGLOBULIN G\HYALURONIDASE RECOMBINANT HUMAN [Suspect]
     Active Substance: HUMAN IMMUNOGLOBULIN G\HYALURONIDASE (HUMAN RECOMBINANT)
     Indication: Primary immunodeficiency syndrome
     Dosage: UNK
     Route: 058
  2. HUMAN IMMUNOGLOBULIN G\HYALURONIDASE RECOMBINANT HUMAN [Suspect]
     Active Substance: HUMAN IMMUNOGLOBULIN G\HYALURONIDASE (HUMAN RECOMBINANT)
     Indication: Immunodeficiency common variable
  3. GAMMAGARD LIQUID [Suspect]
     Active Substance: HUMAN IMMUNOGLOBULIN G
     Indication: Immunodeficiency common variable
     Dosage: UNK
     Route: 042

REACTIONS (35)
  - Osteoarthritis [Unknown]
  - Procedural pain [Unknown]
  - Arthropathy [Unknown]
  - Joint swelling [Unknown]
  - Pain [Unknown]
  - Sinusitis [Unknown]
  - Gait disturbance [Unknown]
  - Arthritis [Unknown]
  - Urinary tract infection [Unknown]
  - Urine odour abnormal [Unknown]
  - Gastroenteritis viral [Unknown]
  - Hyperaesthesia teeth [Unknown]
  - Sensitivity to weather change [Unknown]
  - Tooth fracture [Unknown]
  - Dental caries [Unknown]
  - Immunoglobulins decreased [Unknown]
  - Aphonia [Unknown]
  - Sinus disorder [Unknown]
  - Multiple allergies [Unknown]
  - Mouth ulceration [Unknown]
  - Inability to afford medication [Unknown]
  - Asthma [Unknown]
  - Cold sweat [Unknown]
  - Immunoglobulins abnormal [Unknown]
  - Tonsillolith [Unknown]
  - Oropharyngeal pain [Unknown]
  - Malaise [Unknown]
  - Back pain [Unknown]
  - Blood pressure increased [Unknown]
  - Arthralgia [Unknown]
  - Headache [Unknown]
  - Fatigue [Unknown]
  - Product administration error [Recovered/Resolved]
  - Wrong technique in product usage process [Unknown]
  - Inappropriate schedule of product administration [Unknown]
